FAERS Safety Report 4277601-7 (Version None)
Quarter: 2004Q1

REPORT INFORMATION
  Report Type: 
  Country: None (occurrence: None)
  Receive Date: 20040122
  Receipt Date: 20031118
  Transmission Date: 20041129
  Serious: Yes (Life-Threatening, Hospitalization, Disabling)
  Sender: FDA-Public Use
  Company Number: WAES 0311USA02088

PATIENT
  Age: 74 Year
  Sex: Female

DRUGS (11)
  1. ASPIRIN [Concomitant]
     Route: 048
  2. ATENOLOL [Concomitant]
     Route: 048
  3. PLAVIX [Concomitant]
     Route: 048
  4. NITRO-SPRAY [Concomitant]
  5. IMDUR [Concomitant]
     Route: 048
  6. PRINIVIL [Concomitant]
     Route: 048
  7. NITROLINGUAL [Concomitant]
     Route: 060
  8. OXAZEPAM [Concomitant]
     Route: 048
  9. VIOXX [Suspect]
     Indication: ARTHRITIS
     Route: 048
     Dates: start: 19990101
  10. ZOCOR [Concomitant]
     Route: 048
  11. VITAMINS (UNSPECIFIED) [Concomitant]

REACTIONS (5)
  - CARDIOMYOPATHY [None]
  - CORONARY ARTERY DISEASE [None]
  - GASTROOESOPHAGEAL REFLUX DISEASE [None]
  - HYPERCHOLESTEROLAEMIA [None]
  - MYOCARDIAL INFARCTION [None]
